FAERS Safety Report 23854773 (Version 2)
Quarter: 2024Q3

REPORT INFORMATION
  Report Type: Report from Study
  Country: US (occurrence: US)
  Receive Date: 20240514
  Receipt Date: 20240716
  Transmission Date: 20241016
  Serious: Yes (Other)
  Sender: ABBVIE
  Company Number: US-ABBVIE-5757728

PATIENT
  Age: 77 Year
  Sex: Female

DRUGS (4)
  1. SKYRIZI [Suspect]
     Active Substance: RISANKIZUMAB-RZAA
     Indication: Psoriatic arthropathy
     Dosage: STRENGTH:150 MG/ML?WEEK 0
     Route: 058
     Dates: start: 202311, end: 202311
  2. SKYRIZI [Suspect]
     Active Substance: RISANKIZUMAB-RZAA
     Indication: Psoriasis
     Dosage: STRENGTH:150 MG/ML?WEEK 4
     Route: 058
     Dates: start: 202312, end: 202312
  3. SKYRIZI [Suspect]
     Active Substance: RISANKIZUMAB-RZAA
     Dosage: STRENGTH:150 MG/ML?WEEK 12
     Route: 058
     Dates: start: 202403, end: 202403
  4. SKYRIZI [Suspect]
     Active Substance: RISANKIZUMAB-RZAA
     Dosage: STRENGTH:150 MG/ML
     Route: 058

REACTIONS (1)
  - Dental implantation [Unknown]

NARRATIVE: CASE EVENT DATE: 20240501
